FAERS Safety Report 6780176-1 (Version None)
Quarter: 2010Q2

REPORT INFORMATION
  Report Type: 
  Country: None (occurrence: None)
  Receive Date: 20100618
  Receipt Date: 20100610
  Transmission Date: 20101027
  Serious: Yes (Hospitalization)
  Sender: FDA-Public Use
  Company Number: IL-ELI_LILLY_AND_COMPANY-IL201005005975

PATIENT
  Age: 58 Year
  Sex: Male

DRUGS (3)
  1. BYETTA [Suspect]
     Indication: TYPE 2 DIABETES MELLITUS
     Dosage: 10 UG, UNKNOWN
     Route: 065
  2. BYETTA [Suspect]
     Dosage: 5 UG, UNKNOWN
     Route: 065
  3. BYETTA [Suspect]
     Dosage: 10 UG, UNKNOWN
     Route: 065

REACTIONS (3)
  - ABDOMINAL PAIN [None]
  - DRUG DOSE OMISSION [None]
  - MYOCARDIAL INFARCTION [None]
